FAERS Safety Report 14283750 (Version 2)
Quarter: 2018Q1

REPORT INFORMATION
  Report Type: Spontaneous
  Country: US (occurrence: US)
  Receive Date: 20171214
  Receipt Date: 20180314
  Transmission Date: 20180509
  Serious: Yes (Other)
  Sender: FDA-Public Use
  Company Number: US-BAYER-2017-234465

PATIENT
  Age: 56 Year
  Sex: Female

DRUGS (6)
  1. CIPRO [Suspect]
     Active Substance: CIPROFLOXACIN HYDROCHLORIDE
     Indication: POST PROCEDURAL INFECTION
     Dosage: UNK
     Dates: start: 20171001, end: 20171002
  2. AZITHROMYCIN ANHYDROUS. [Concomitant]
     Active Substance: AZITHROMYCIN ANHYDROUS
     Dosage: 100 MG, TID
     Dates: start: 20171001, end: 20171008
  3. FLOMAX [MORNIFLUMATE] [Concomitant]
     Dosage: 4 MG, QD
     Route: 048
     Dates: start: 20171001, end: 20171008
  4. OXY 5 [Concomitant]
     Dosage: UNK
     Dates: start: 20171001, end: 20171008
  5. ZOFRAN [Concomitant]
     Active Substance: ONDANSETRON HYDROCHLORIDE
     Dosage: 4 MG, PRN
     Route: 048
     Dates: start: 20171001, end: 20171008
  6. HYDROCODONE [Concomitant]
     Active Substance: HYDROCODONE
     Dosage: UNK
     Dates: start: 20171001, end: 20171008

REACTIONS (12)
  - Confusional state [None]
  - Motor dysfunction [None]
  - Aortic dissection [None]
  - Tendon rupture [None]
  - Asthenia [None]
  - Abdominal pain [None]
  - Pain in extremity [None]
  - Muscle spasms [None]
  - Back pain [Not Recovered/Not Resolved]
  - Amnesia [None]
  - Arthralgia [None]
  - Unevaluable event [None]

NARRATIVE: CASE EVENT DATE: 20171002
